FAERS Safety Report 5137398-5 (Version None)
Quarter: 2006Q4

REPORT INFORMATION
  Report Type: 
  Country: None (occurrence: None)
  Receive Date: 20061030
  Receipt Date: 20051026
  Transmission Date: 20070319
  Serious: No
  Sender: FDA-Public Use
  Company Number: US-GLAXOSMITHKLINE-A0579763A

PATIENT
  Age: 89 Year
  Sex: Female

DRUGS (7)
  1. ADVAIR HFA [Suspect]
     Indication: CHRONIC OBSTRUCTIVE PULMONARY DISEASE
     Dosage: 1PUFF TWICE PER DAY
     Route: 055
     Dates: end: 20051025
  2. ALBUTEROL [Concomitant]
  3. COMBIVENT [Concomitant]
  4. LEVAQUIN [Concomitant]
  5. THYROID REPLACEMENT [Concomitant]
  6. XANAX [Concomitant]
  7. METAMUCIL [Concomitant]

REACTIONS (3)
  - SALIVARY HYPERSECRETION [None]
  - SWOLLEN TONGUE [None]
  - TONGUE DISCOLOURATION [None]
